FAERS Safety Report 8842116 (Version 1)
Quarter: 2012Q4

REPORT INFORMATION
  Report Type: 
  Country: US (occurrence: US)
  Receive Date: 20121016
  Receipt Date: 20121016
  Transmission Date: 20130627
  Serious: Yes (Other)
  Sender: FDA-Public Use
  Company Number: PHEH2012US020045

PATIENT
  Sex: Male

DRUGS (2)
  1. CARBAMAZEPINE [Suspect]
     Dosage: 100 mg, TID
     Dates: start: 19820902
  2. PHENOBARBITAL [Concomitant]
     Dosage: 30 mg, BID

REACTIONS (1)
  - Convulsion [Unknown]
